FAERS Safety Report 7518160-2 (Version None)
Quarter: 2011Q2

REPORT INFORMATION
  Report Type: 
  Country: None (occurrence: None)
  Receive Date: 20110531
  Receipt Date: 20110531
  Transmission Date: 20111010
  Serious: Yes (Hospitalization)
  Sender: FDA-Public Use
  Company Number: None

PATIENT
  Sex: Female
  Weight: 10.85 kg

DRUGS (2)
  1. CARBOPLATIN [Suspect]
     Dosage: 374 MG
     Dates: end: 20110518
  2. THIOTEPA [Suspect]
     Dosage: 220 MG
     Dates: end: 20110518

REACTIONS (3)
  - NEUTROPHIL COUNT DECREASED [None]
  - WHITE BLOOD CELL COUNT DECREASED [None]
  - PLATELET COUNT DECREASED [None]
